FAERS Safety Report 17254882 (Version 2)
Quarter: 2020Q1

REPORT INFORMATION
  Report Type: Spontaneous
  Country: US (occurrence: US)
  Receive Date: 20200109
  Receipt Date: 20200117
  Transmission Date: 20200409
  Serious: No
  Sender: FDA-Public Use
  Company Number: US-CHILTERN-US-2019-000885

PATIENT

DRUGS (2)
  1. RHOPRESSA [Suspect]
     Active Substance: NETARSUDIL MESYLATE
     Route: 047
  2. ROCKLATAN [Suspect]
     Active Substance: LATANOPROST\NETARSUDIL MESYLATE
     Dosage: UNK
     Route: 047

REACTIONS (2)
  - Conjunctival hyperaemia [Unknown]
  - Dry eye [Unknown]
